FAERS Safety Report 9290172 (Version 1)
Quarter: 2013Q2

REPORT INFORMATION
  Report Type: Spontaneous
  Country: US (occurrence: None)
  Receive Date: 20130514
  Receipt Date: 20130514
  Transmission Date: 20140414
  Serious: Yes (Other)
  Sender: FDA-Public Use
  Company Number: None

PATIENT
  Age: 18 Year
  Sex: Male
  Weight: 70.76 kg

DRUGS (2)
  1. ZONISAMIDE [Suspect]
     Indication: EPILEPSY
     Dosage: 100 MG, 3 CAPSULES AT NIGHT, MOUTH
     Route: 048
     Dates: start: 20121206, end: 20130401
  2. ZONISAMIDE [Suspect]
     Indication: COMPLEX PARTIAL SEIZURES
     Dosage: 100 MG, 3 CAPSULES AT NIGHT, MOUTH
     Route: 048
     Dates: start: 20121206, end: 20130401

REACTIONS (2)
  - Muscular weakness [None]
  - Dyspnoea [None]
